FAERS Safety Report 9632450 (Version 2)
Quarter: 2014Q1

REPORT INFORMATION
  Report Type: Spontaneous
  Country: US (occurrence: None)
  Receive Date: 20131016
  Receipt Date: 20140221
  Transmission Date: 20141002
  Serious: Yes (Other)
  Sender: FDA-Public Use
  Company Number: ADR-2013-01851

PATIENT
  Age: 44 Year
  Sex: Female

DRUGS (3)
  1. LIORESAL INTRATHECAL (BACLOFEN INJECTION) [Suspect]
     Route: 037
     Dates: start: 201203
  2. LIORESAL [Suspect]
     Dates: start: 201110
  3. MORPHINE [Concomitant]

REACTIONS (2)
  - Malaise [None]
  - Liver disorder [None]
